FAERS Safety Report 9636318 (Version 2)
Quarter: 2013Q4

REPORT INFORMATION
  Report Type: Spontaneous
  Country: CN (occurrence: CN)
  Receive Date: 20131021
  Receipt Date: 20131024
  Transmission Date: 20140711
  Serious: Yes (Other)
  Sender: FDA-Public Use
  Company Number: CN-PFIZER INC-2013296874

PATIENT
  Age: 60 Year
  Sex: Male

DRUGS (3)
  1. LIPITOR [Suspect]
     Indication: HYPERLIPIDAEMIA
     Dosage: 40 MG, DAILY
     Route: 048
  2. LIPITOR [Suspect]
     Indication: ARTERIOSCLEROSIS
  3. ACETYLSALICYLIC ACID [Concomitant]
     Dosage: 0.1 G, 1X/DAY
     Route: 048

REACTIONS (1)
  - Cataract [Not Recovered/Not Resolved]
